FAERS Safety Report 19710920 (Version 1)
Quarter: 2021Q3

REPORT INFORMATION
  Report Type: Spontaneous
  Country: CY (occurrence: CY)
  Receive Date: 20210817
  Receipt Date: 20210817
  Transmission Date: 20211014
  Serious: Yes (Other)
  Sender: FDA-Public Use
  Company Number: CY-SA-2021SA269063

PATIENT
  Age: 60 Year
  Sex: Male

DRUGS (1)
  1. STILNOX [Suspect]
     Active Substance: ZOLPIDEM TARTRATE
     Indication: INSOMNIA
     Dosage: UNK
     Route: 065

REACTIONS (5)
  - Product availability issue [Unknown]
  - Hypertension [Recovered/Resolved]
  - Intentional product misuse [Unknown]
  - Diabetes mellitus [Unknown]
  - Weight decreased [Unknown]
